FAERS Safety Report 12977565 (Version 1)
Quarter: 2016Q4

REPORT INFORMATION
  Report Type: Spontaneous
  Country: US (occurrence: US)
  Receive Date: 20161125
  Receipt Date: 20161125
  Transmission Date: 20170207
  Serious: No
  Sender: FDA-Public Use
  Company Number: None

PATIENT
  Age: 39 Year
  Sex: Female
  Weight: 57.15 kg

DRUGS (2)
  1. VENLAFAXINE [Suspect]
     Active Substance: VENLAFAXINE HYDROCHLORIDE
     Indication: DEPRESSION
     Dosage: QUANTITY:30 CAPSULE(S); ORAL?
     Route: 048
     Dates: start: 20161116, end: 20161124
  2. VENLAFAXINE [Suspect]
     Active Substance: VENLAFAXINE HYDROCHLORIDE
     Indication: ANXIETY
     Dosage: QUANTITY:30 CAPSULE(S); ORAL?
     Route: 048
     Dates: start: 20161116, end: 20161124

REACTIONS (5)
  - Dizziness [None]
  - Feeling abnormal [None]
  - Feeling drunk [None]
  - Diarrhoea [None]
  - Polymenorrhoea [None]

NARRATIVE: CASE EVENT DATE: 20161125
